FAERS Safety Report 11428702 (Version 1)
Quarter: 2015Q3

REPORT INFORMATION
  Report Type: Spontaneous
  Country: US (occurrence: None)
  Receive Date: 20150827
  Receipt Date: 20150827
  Transmission Date: 20151125
  Serious: No
  Sender: FDA-Public Use
  Company Number: None

PATIENT
  Age: 24 Year
  Sex: Female
  Weight: 56.7 kg

DRUGS (1)
  1. NEXPLANON [Suspect]
     Active Substance: ETONOGESTREL

REACTIONS (5)
  - Depression [None]
  - Suicidal ideation [None]
  - Mood altered [None]
  - Mood swings [None]
  - Implant site haemorrhage [None]

NARRATIVE: CASE EVENT DATE: 20150722
